FAERS Safety Report 11836546 (Version 1)
Quarter: 2015Q4

REPORT INFORMATION
  Report Type: Report from Study
  Country: JP (occurrence: JP)
  Receive Date: 20151215
  Receipt Date: 20151215
  Transmission Date: 20160305
  Serious: Yes (Other)
  Sender: FDA-Public Use
  Company Number: JP-OTSUKA-2015_016475

PATIENT
  Age: 67 Year
  Sex: Female
  Weight: 50.2 kg

DRUGS (14)
  1. NIFEDIPINE. [Concomitant]
     Active Substance: NIFEDIPINE
     Indication: PRODUCT USED FOR UNKNOWN INDICATION
     Dosage: 80 MG/DAY
     Route: 048
     Dates: end: 20150522
  2. TOLVAPTAN [Suspect]
     Active Substance: TOLVAPTAN
     Indication: CONGENITAL CYSTIC KIDNEY DISEASE
     Dosage: UNK
     Route: 048
     Dates: start: 20150406, end: 20150406
  3. NIFEDIPINE. [Concomitant]
     Active Substance: NIFEDIPINE
     Dosage: 80 MG/DAY
     Route: 048
     Dates: start: 20151121
  4. OLMETEC [Concomitant]
     Active Substance: OLMESARTAN MEDOXOMIL
     Indication: PRODUCT USED FOR UNKNOWN INDICATION
     Dosage: 40 MG/DAY
     Route: 048
     Dates: end: 20150522
  5. OLMETEC [Concomitant]
     Active Substance: OLMESARTAN MEDOXOMIL
     Dosage: 20 MG/DAY
     Route: 048
     Dates: start: 20150523, end: 20151016
  6. AZELNIDIPINE [Concomitant]
     Active Substance: AZELNIDIPINE
     Indication: PRODUCT USED FOR UNKNOWN INDICATION
     Dosage: 8 MG/DAY
     Route: 048
     Dates: start: 20150822, end: 20151016
  7. TOLVAPTAN [Suspect]
     Active Substance: TOLVAPTAN
     Dosage: 22.5 MG/DAY
     Route: 048
     Dates: start: 20150919
  8. BITAFANT TOWA [Concomitant]
     Indication: PRODUCT USED FOR UNKNOWN INDICATION
     Dosage: 25 MG/DAY
     Route: 048
  9. TOLVAPTAN [Suspect]
     Active Substance: TOLVAPTAN
     Dosage: 22.5 MG/DAY
     Route: 048
     Dates: start: 20150407, end: 20150408
  10. TOLVAPTAN [Suspect]
     Active Substance: TOLVAPTAN
     Dosage: 30 MG/DAY
     Route: 048
     Dates: start: 20150409, end: 20150918
  11. OLMETEC [Concomitant]
     Active Substance: OLMESARTAN MEDOXOMIL
     Dosage: 40 MG/DAY
     Route: 048
     Dates: start: 20151121
  12. REZALTAS [Concomitant]
     Active Substance: AZELNIDIPINE\OLMESARTAN MEDOXOMIL
     Indication: PRODUCT USED FOR UNKNOWN INDICATION
     Dosage: UNK
     Route: 048
     Dates: start: 20151017, end: 20151120
  13. NIFEDIPINE. [Concomitant]
     Active Substance: NIFEDIPINE
     Dosage: 40 MG/DAY
     Route: 048
     Dates: start: 20150523, end: 20151120
  14. SODIUM BICARBONATE. [Concomitant]
     Active Substance: SODIUM BICARBONATE
     Indication: PRODUCT USED FOR UNKNOWN INDICATION
     Dosage: 1 G/DAY
     Route: 048

REACTIONS (5)
  - Hyperuricaemia [Unknown]
  - Hypertension [Unknown]
  - Hypocalcaemia [Recovered/Resolved]
  - Hypocalcaemia [Recovered/Resolved]
  - Neutrophil count increased [Unknown]

NARRATIVE: CASE EVENT DATE: 20150523
